APPROVED DRUG PRODUCT: AMMONIA N 13
Active Ingredient: AMMONIA N-13
Strength: 30mCi-300mCi/8ML (3.75-37.5mCi/ML)
Dosage Form/Route: INJECTABLE;INTRAVENOUS
Application: A203779 | Product #001 | TE Code: AP
Applicant: 3D IMAGING DRUG DESIGN AND DEVELOPMENT LLC
Approved: Oct 19, 2015 | RLD: No | RS: No | Type: RX